FAERS Safety Report 7069968-1 (Version None)
Quarter: 2010Q4

REPORT INFORMATION
  Report Type: 
  Country: None (occurrence: None)
  Receive Date: 20101028
  Receipt Date: 20100714
  Transmission Date: 20110411
  Serious: No
  Sender: FDA-Public Use
  Company Number: US-WYE-H16391510

PATIENT
  Age: 57 Year
  Sex: Female
  Weight: 74.91 kg

DRUGS (2)
  1. ADVIL [Suspect]
     Indication: ARTHRALGIA
     Dosage: 1 TO 2 TABLETS AS NEEDED
     Route: 048
     Dates: start: 20100709
  2. ADVIL [Suspect]
     Indication: MYALGIA

REACTIONS (1)
  - FATIGUE [None]
